FAERS Safety Report 24811817 (Version 1)
Quarter: 2025Q1

REPORT INFORMATION
  Report Type: Spontaneous
  Country: US (occurrence: US)
  Receive Date: 20250106
  Receipt Date: 20250106
  Transmission Date: 20250409
  Serious: No
  Sender: BRAINTREE
  Company Number: US-BRAINTREE LABORATORIES, INC.-2023BTE00887

PATIENT
  Age: 70 Year
  Sex: Female
  Weight: 48.98 kg

DRUGS (3)
  1. SUTAB [Suspect]
     Active Substance: MAGNESIUM SULFATE\POTASSIUM CHLORIDE\SODIUM SULFATE
     Indication: Colonoscopy
     Route: 048
     Dates: start: 20231129, end: 20231129
  2. ATORVASTATIN [Concomitant]
     Active Substance: ATORVASTATIN
  3. LEVOXYL [Concomitant]
     Active Substance: LEVOTHYROXINE SODIUM

REACTIONS (2)
  - Haematochezia [Recovered/Resolved]
  - Haemorrhoids [Unknown]

NARRATIVE: CASE EVENT DATE: 20231101
